FAERS Safety Report 18313680 (Version 1)
Quarter: 2020Q3

REPORT INFORMATION
  Report Type: Spontaneous
  Country: US (occurrence: US)
  Receive Date: 20200925
  Receipt Date: 20200925
  Transmission Date: 20201103
  Serious: No
  Sender: FDA-Public Use
  Company Number: US-PFIZER INC-2020368869

PATIENT
  Age: 43 Year
  Sex: Female
  Weight: 65.77 kg

DRUGS (4)
  1. ZOLOFT [Suspect]
     Active Substance: SERTRALINE HYDROCHLORIDE
     Indication: POST-TRAUMATIC STRESS DISORDER
     Dosage: 25 MG  (BEFORE BED)
     Route: 048
     Dates: start: 20200922
  2. ZOLOFT [Suspect]
     Active Substance: SERTRALINE HYDROCHLORIDE
     Indication: PANIC ATTACK
  3. ZOLOFT [Suspect]
     Active Substance: SERTRALINE HYDROCHLORIDE
     Indication: DEPRESSION
  4. ZOLOFT [Suspect]
     Active Substance: SERTRALINE HYDROCHLORIDE
     Indication: ANXIETY

REACTIONS (8)
  - Bradykinesia [Unknown]
  - Speech disorder [Unknown]
  - Dizziness [Unknown]
  - Feeling of relaxation [Unknown]
  - Somnolence [Unknown]
  - Feeling abnormal [Unknown]
  - Feeling drunk [Unknown]
  - Loss of personal independence in daily activities [Unknown]
